FAERS Safety Report 4425908-2 (Version None)
Quarter: 2004Q3

REPORT INFORMATION
  Report Type: 
  Country: None (occurrence: None)
  Receive Date: 20040719
  Receipt Date: 20030815
  Transmission Date: 20050211
  Serious: Yes (Hospitalization)
  Sender: FDA-Public Use
  Company Number: 177711

PATIENT
  Age: 31 Year
  Sex: Female
  Weight: 68.0396 kg

DRUGS (6)
  1. AVONEX [Suspect]
     Indication: MULTIPLE SCLEROSIS
     Dosage: 30 MCG QW IM
     Route: 030
     Dates: start: 20010101, end: 20010101
  2. AVONEX [Suspect]
     Indication: MULTIPLE SCLEROSIS
     Dosage: 30 MCG Q5D IM
     Route: 030
     Dates: start: 20020101
  3. NEURONTIN [Concomitant]
  4. BACLOFEN [Concomitant]
  5. DIET SUPPLEMENTS [Concomitant]
  6. CELEXA [Concomitant]

REACTIONS (5)
  - DEPRESSION [None]
  - HEADACHE [None]
  - INJECTION SITE PAIN [None]
  - MULTIPLE SCLEROSIS RELAPSE [None]
  - TOOTHACHE [None]
